FAERS Safety Report 16000370 (Version 6)
Quarter: 2020Q1

REPORT INFORMATION
  Report Type: Spontaneous
  Country: US (occurrence: US)
  Receive Date: 20190225
  Receipt Date: 20200323
  Transmission Date: 20200409
  Serious: Yes (Other)
  Sender: FDA-Public Use
  Company Number: US-PFIZER INC-2019078030

PATIENT
  Age: 96 Year
  Sex: Female

DRUGS (1)
  1. LATANOPROST. [Suspect]
     Active Substance: LATANOPROST
     Indication: GLAUCOMA
     Dosage: 2 GTT, DAILY (1 DROP EACH EYE DAILY)
     Route: 047

REACTIONS (6)
  - Drug hypersensitivity [Unknown]
  - Tremor [Unknown]
  - Blindness [Recovered/Resolved]
  - Drug intolerance [Unknown]
  - Vision blurred [Unknown]
  - Dysgraphia [Unknown]
